FAERS Safety Report 17308811 (Version 1)
Quarter: 2020Q1

REPORT INFORMATION
  Report Type: Spontaneous
  Country: US (occurrence: US)
  Receive Date: 20200123
  Receipt Date: 20200123
  Transmission Date: 20200409
  Serious: Yes (Other)
  Sender: FDA-Public Use
  Company Number: None

PATIENT
  Age: 46 Year
  Sex: Male
  Weight: 62 kg

DRUGS (2)
  1. KRINTAFEL [Suspect]
     Active Substance: TAFENOQUINE SUCCINATE
     Indication: MALARIA
     Dosage: ?          OTHER FREQUENCY:SINGLE DOSE;?
     Route: 048
     Dates: start: 20190716, end: 20190716
  2. ARTEMETHER/LUMEFANTRINE (COARTEM) [Concomitant]
     Dates: start: 20190710, end: 20190712

REACTIONS (4)
  - Pyrexia [None]
  - Malaria [None]
  - Drug ineffective [None]
  - Chills [None]

NARRATIVE: CASE EVENT DATE: 20191022
